FAERS Safety Report 24132417 (Version 2)
Quarter: 2024Q3

REPORT INFORMATION
  Report Type: Spontaneous
  Country: CN (occurrence: CN)
  Receive Date: 20240724
  Receipt Date: 20240731
  Transmission Date: 20241017
  Serious: Yes (Other)
  Sender: PFIZER
  Company Number: CN-TAKEDA-2024TUS071035

PATIENT
  Age: 24 Year
  Sex: Female

DRUGS (1)
  1. BRENTUXIMAB VEDOTIN [Suspect]
     Active Substance: BRENTUXIMAB VEDOTIN
     Indication: Anaplastic large cell lymphoma T- and null-cell types
     Dosage: 100 MG, 1X/DAY (QD)
     Route: 041
     Dates: start: 20240625, end: 20240625

REACTIONS (4)
  - Infusion related reaction [Recovering/Resolving]
  - Chest discomfort [Recovered/Resolved]
  - Feeling cold [Recovered/Resolved]
  - Body temperature increased [Recovered/Resolved]

NARRATIVE: CASE EVENT DATE: 20240625
